FAERS Safety Report 17127416 (Version 2)
Quarter: 2019Q4

REPORT INFORMATION
  Report Type: Spontaneous
  Country: FR (occurrence: FR)
  Receive Date: 20191209
  Receipt Date: 20191211
  Transmission Date: 20200122
  Serious: Yes (Hospitalization)
  Sender: FDA-Public Use
  Company Number: FR-TEVA-2019-FR-1148153

PATIENT
  Age: 87 Year
  Sex: Female
  Weight: 62 kg

DRUGS (7)
  1. ATORVASTATINE [Suspect]
     Active Substance: ATORVASTATIN
     Indication: DYSLIPIDAEMIA
     Dosage: 10 MG PER DAY
     Route: 048
     Dates: start: 200710
  2. ACIDE ACETYLSALICYLIQUE [Suspect]
     Active Substance: ASPIRIN
     Indication: MYOCARDIAL ISCHAEMIA
     Dosage: 100 MG PER DAY
     Route: 048
     Dates: start: 200710
  3. GALVUS 50 MG, COMPRIME [Suspect]
     Active Substance: VILDAGLIPTIN
     Indication: TYPE 2 DIABETES MELLITUS
     Dosage: 2 DOSAGE FORMS PER DAY
     Route: 048
     Dates: start: 20190521, end: 20191024
  4. HYDROCHLOROTHIAZIDE. [Suspect]
     Active Substance: HYDROCHLOROTHIAZIDE
     Indication: HYPERTENSION
     Dosage: 12.5 MG PER DAY
     Route: 048
     Dates: start: 200710, end: 20191030
  5. ACEBUTOLOL BASE [Suspect]
     Active Substance: ACEBUTOLOL
     Indication: MYOCARDIAL ISCHAEMIA
     Dosage: 300 MG PER DAY
     Route: 048
     Dates: start: 200710
  6. QUINAPRIL BASE [Suspect]
     Active Substance: QUINAPRIL
     Indication: HYPERTENSION
     Dosage: 20 MG PER DAY
     Route: 048
     Dates: start: 200710, end: 20191024
  7. SPIRONOLACTONE. [Suspect]
     Active Substance: SPIRONOLACTONE
     Indication: HYPERTENSION
     Dosage: 12.5 MG PER DAY
     Route: 048
     Dates: start: 2014, end: 20191030

REACTIONS (1)
  - Pemphigoid [Recovering/Resolving]

NARRATIVE: CASE EVENT DATE: 201910
